FAERS Safety Report 13365194 (Version 1)
Quarter: 2017Q1

REPORT INFORMATION
  Report Type: Spontaneous
  Country: US (occurrence: US)
  Receive Date: 20170323
  Receipt Date: 20170323
  Transmission Date: 20170429
  Serious: No
  Sender: FDA-Public Use
  Company Number: US-ROCHE-1462775

PATIENT
  Age: 57 Year
  Sex: Female

DRUGS (1)
  1. XOLAIR [Suspect]
     Active Substance: OMALIZUMAB
     Indication: ASTHMA
     Dosage: BI-MONTHLY
     Route: 065
     Dates: start: 201403

REACTIONS (5)
  - Asthma [Not Recovered/Not Resolved]
  - Chest discomfort [Recovering/Resolving]
  - Arthralgia [Recovered/Resolved]
  - Wheezing [Not Recovered/Not Resolved]
  - Eosinophil count increased [Not Recovered/Not Resolved]

NARRATIVE: CASE EVENT DATE: 201409
